FAERS Safety Report 24103155 (Version 1)
Quarter: 2024Q3

REPORT INFORMATION
  Report Type: Spontaneous
  Country: NO (occurrence: NO)
  Receive Date: 20240717
  Receipt Date: 20240717
  Transmission Date: 20241017
  Serious: Yes (Disabling, Other)
  Sender: SANOFI AVENTIS
  Company Number: NO-SA-SAC20240715000581

PATIENT
  Age: 52 Year
  Sex: Male

DRUGS (2)
  1. ENOXAPARIN [Suspect]
     Active Substance: ENOXAPARIN
     Indication: Cardiac arrest
     Dosage: UNK
     Route: 065
     Dates: start: 20210613
  2. ENOXAPARIN [Suspect]
     Active Substance: ENOXAPARIN
     Indication: Pulmonary embolism

REACTIONS (6)
  - Disability [Unknown]
  - Subcortical stroke [Unknown]
  - Ischaemic cerebral infarction [Unknown]
  - Heparin-induced thrombocytopenia [Unknown]
  - Thrombosis [Unknown]
  - Platelet count decreased [Unknown]

NARRATIVE: CASE EVENT DATE: 20210613
